FAERS Safety Report 9981643 (Version 1)
Quarter: 2014Q1

REPORT INFORMATION
  Report Type: Report from Study
  Country: US (occurrence: US)
  Receive Date: 20140307
  Receipt Date: 20140307
  Transmission Date: 20141002
  Serious: No
  Sender: FDA-Public Use
  Company Number: US-ABBVIE-13P-163-1180046-00

PATIENT
  Age: 50 Year
  Sex: Female

DRUGS (3)
  1. HUMIRA [Suspect]
     Indication: RHEUMATOID ARTHRITIS
     Route: 058
     Dates: start: 201310
  2. COUMADIN [Concomitant]
     Indication: BLINDNESS UNILATERAL
  3. COUMADIN [Concomitant]
     Indication: THROMBOSIS

REACTIONS (2)
  - Sputum discoloured [Not Recovered/Not Resolved]
  - Influenza [Not Recovered/Not Resolved]
